FAERS Safety Report 5801092-5 (Version None)
Quarter: 2008Q3

REPORT INFORMATION
  Report Type: 
  Country: None (occurrence: None)
  Receive Date: 20080707
  Receipt Date: 20080626
  Transmission Date: 20090109
  Serious: Yes (Other)
  Sender: FDA-Public Use
  Company Number: DE-BRISTOL-MYERS SQUIBB COMPANY-14249171

PATIENT
  Age: 59 Year
  Sex: Male

DRUGS (3)
  1. ERBITUX [Suspect]
     Route: 042
  2. FLUOROURACIL [Suspect]
  3. IRINOTECAN [Suspect]

REACTIONS (1)
  - PLATELET COUNT DECREASED [None]
